FAERS Safety Report 9360939 (Version 2)
Quarter: 2013Q3

REPORT INFORMATION
  Report Type: Spontaneous
  Country: IT (occurrence: IT)
  Receive Date: 20130621
  Receipt Date: 20130710
  Transmission Date: 20140515
  Serious: Yes (Hospitalization)
  Sender: FDA-Public Use
  Company Number: IT-SANOFI-AVENTIS-2013SA059782

PATIENT
  Age: 85 Year
  Sex: Male

DRUGS (2)
  1. LASIX FIALE [Suspect]
     Indication: CARDIAC FAILURE
     Route: 042
     Dates: start: 20130211, end: 20130213
  2. LASIX FIALE [Suspect]
     Indication: CARDIAC FAILURE
     Route: 065

REACTIONS (3)
  - Renal impairment [Recovering/Resolving]
  - Blood creatinine increased [Recovering/Resolving]
  - Incorrect route of drug administration [Unknown]
